FAERS Safety Report 5392845-9 (Version None)
Quarter: 2007Q3

REPORT INFORMATION
  Report Type: 
  Country: None (occurrence: None)
  Receive Date: 20070718
  Receipt Date: 20070705
  Transmission Date: 20080115
  Serious: Yes (Hospitalization)
  Sender: FDA-Public Use
  Company Number: S07-SWI-03016-01

PATIENT
  Age: 33 Year
  Sex: Female

DRUGS (5)
  1. CITALOPRAM HYDROBROMIDE [Suspect]
     Dates: start: 20061117, end: 20061117
  2. ACETAMINOPHEN [Suspect]
     Dates: start: 20061117, end: 20061117
  3. ZYRTEC [Suspect]
     Dates: start: 20061117, end: 20061117
  4. NEURONTIN [Suspect]
     Dates: start: 20061117, end: 20061117
  5. PREDNISONE [Suspect]
     Dates: start: 20061117, end: 20061117

REACTIONS (6)
  - COMA [None]
  - LOSS OF CONSCIOUSNESS [None]
  - OVERDOSE [None]
  - OXYGEN SATURATION DECREASED [None]
  - PLEURAL DISORDER [None]
  - SUICIDE ATTEMPT [None]
